FAERS Safety Report 6660450-X (Version None)
Quarter: 2010Q1

REPORT INFORMATION
  Report Type: 
  Country: None (occurrence: None)
  Receive Date: 20100326
  Receipt Date: 20100315
  Transmission Date: 20100710
  Serious: Yes (Death, Hospitalization)
  Sender: FDA-Public Use
  Company Number: CIP10000594

PATIENT
  Age: 80 Year
  Sex: Female

DRUGS (3)
  1. FURADANTIN [Suspect]
     Indication: PYELONEPHRITIS
     Dosage: ORAL
     Route: 048
     Dates: start: 20091219, end: 20091230
  2. PREVISCAN /00789001/ (FLUINDIONE) [Suspect]
     Dosage: 10 MG DAILY, ORAL
     Route: 048
     Dates: end: 20100102
  3. CIFLOX  /00697201/ (CIPROFLOXACIN) [Suspect]
     Indication: SEPTIC SHOCK
     Dosage: INTRAVESICAL
     Dates: start: 20091231, end: 20100101

REACTIONS (3)
  - INTERNATIONAL NORMALISED RATIO INCREASED [None]
  - MULTI-ORGAN FAILURE [None]
  - SEPTIC SHOCK [None]
